FAERS Safety Report 17857371 (Version 6)
Quarter: 2020Q4

REPORT INFORMATION
  Report Type: Spontaneous
  Country: CR (occurrence: CR)
  Receive Date: 20200603
  Receipt Date: 20201119
  Transmission Date: 20210113
  Serious: Yes (Other)
  Sender: FDA-Public Use
  Company Number: CR-AMGEN-CRISP2020087392

PATIENT
  Age: 66 Year
  Sex: Female

DRUGS (1)
  1. ENBREL [Suspect]
     Active Substance: ETANERCEPT
     Indication: PRODUCT USED FOR UNKNOWN INDICATION
     Dosage: UNK
     Route: 065

REACTIONS (14)
  - Renal cyst [Unknown]
  - Dermatitis allergic [Unknown]
  - Pulmonary fibrosis [Unknown]
  - Device delivery system issue [Unknown]
  - Incorrect product administration duration [Unknown]
  - Headache [Unknown]
  - Injection site pain [Unknown]
  - Cardiomegaly [Unknown]
  - Pain [Unknown]
  - Injection site hypertrophy [Unknown]
  - Injection site haemorrhage [Unknown]
  - Injection site swelling [Unknown]
  - Hepatic steatosis [Unknown]
  - Injection site bruising [Unknown]
